FAERS Safety Report 12581423 (Version 1)
Quarter: 2016Q3

REPORT INFORMATION
  Report Type: Spontaneous
  Country: US (occurrence: US)
  Receive Date: 20160721
  Receipt Date: 20160721
  Transmission Date: 20161109
  Serious: No
  Sender: FDA-Public Use
  Company Number: US-PRESTIUM-2015RN000038

PATIENT
  Age: 81 Year
  Sex: Female
  Weight: 55.78 kg

DRUGS (11)
  1. VITAMINS                           /90003601/ [Concomitant]
     Active Substance: VITAMINS
     Dosage: UNK, QD
  2. CLOBETASOL PROPIONATE. [Suspect]
     Active Substance: CLOBETASOL PROPIONATE
     Indication: RASH
     Dosage: 0.05% APPLIED ONCE TO THE AFFECTED AREA
     Route: 061
     Dates: start: 20150711
  3. ALLEGRA [Concomitant]
     Active Substance: FEXOFENADINE HYDROCHLORIDE
     Dosage: 180 MG, QAM
  4. DIGOXIN. [Concomitant]
     Active Substance: DIGOXIN
     Dosage: 0.125 ?G, QAM
  5. LINZESS [Concomitant]
     Active Substance: LINACLOTIDE
     Dosage: 290 ?G, QAM
  6. DILTIAZEM. [Concomitant]
     Active Substance: DILTIAZEM
     Dosage: 240 MG, QAM
  7. CITRUCEL [Concomitant]
     Active Substance: METHYLCELLULOSE (4000 MPA.S)
     Dosage: 1 TEASPOON WITH 40 CC OF WATER EVERY EVENING
  8. OMEPRAZOLE. [Concomitant]
     Active Substance: OMEPRAZOLE
     Dosage: 40 MG, QAM
  9. LOSARTAN. [Concomitant]
     Active Substance: LOSARTAN
     Dosage: 100 MG, QAM
  10. LEVOTHYROXINE. [Concomitant]
     Active Substance: LEVOTHYROXINE
     Dosage: 0.112 ?G, QAM
  11. CRESTOR [Concomitant]
     Active Substance: ROSUVASTATIN CALCIUM
     Dosage: 2.5 MG, QAM

REACTIONS (7)
  - Eye swelling [Recovered/Resolved]
  - Insomnia [Recovered/Resolved]
  - Bowel movement irregularity [Recovered/Resolved]
  - Head discomfort [Recovered/Resolved]
  - Dysuria [Recovered/Resolved]
  - Nausea [Recovered/Resolved]
  - Lip swelling [Recovered/Resolved]

NARRATIVE: CASE EVENT DATE: 20150712
